FAERS Safety Report 23627167 (Version 2)
Quarter: 2024Q2

REPORT INFORMATION
  Report Type: Report from Study
  Country: US (occurrence: US)
  Receive Date: 20240313
  Receipt Date: 20240606
  Transmission Date: 20240716
  Serious: No
  Sender: FDA-Public Use
  Company Number: US-SPRINGWORKS THERAPEUTICS-SW-001353

PATIENT
  Age: 42 Year
  Sex: Female
  Weight: 93.878 kg

DRUGS (1)
  1. NIROGACESTAT [Suspect]
     Active Substance: NIROGACESTAT
     Indication: Desmoid tumour
     Dosage: 150 MILLIGRAM, BID
     Route: 048
     Dates: start: 20240213

REACTIONS (15)
  - Vaginal abscess [Unknown]
  - Bacterial vaginosis [Unknown]
  - Panic attack [Recovered/Resolved]
  - Palpitations [Recovered/Resolved]
  - Dehydration [Unknown]
  - Decreased appetite [Unknown]
  - Weight decreased [Unknown]
  - Vomiting [Unknown]
  - Dry skin [Unknown]
  - Skin fissures [Unknown]
  - Nausea [Unknown]
  - Fatigue [Unknown]
  - Blood potassium decreased [Unknown]
  - Diarrhoea [Unknown]
  - Product dose omission issue [Unknown]

NARRATIVE: CASE EVENT DATE: 20240221
